FAERS Safety Report 6546704-6 (Version None)
Quarter: 2010Q1

REPORT INFORMATION
  Report Type: 
  Country: None (occurrence: None)
  Receive Date: 20100119
  Receipt Date: 20100104
  Transmission Date: 20100710
  Serious: Yes (Death)
  Sender: FDA-Public Use
  Company Number: 2010VX000122

PATIENT
  Age: 73 Year
  Sex: Female

DRUGS (7)
  1. BUTALBITAL ACETAMINOPHEN AND CAFFEINE [Suspect]
     Indication: DRUG USE FOR UNKNOWN INDICATION
  2. DOXEPIN HCL [Suspect]
     Indication: DRUG USE FOR UNKNOWN INDICATION
  3. ALPRAZOLAM [Suspect]
     Indication: DRUG USE FOR UNKNOWN INDICATION
  4. IRBESARTAN [Suspect]
     Indication: DRUG USE FOR UNKNOWN INDICATION
  5. EZETIMIBE [Suspect]
     Indication: DRUG USE FOR UNKNOWN INDICATION
  6. SALICYLATE [Suspect]
     Indication: DRUG USE FOR UNKNOWN INDICATION
  7. CLOPIDOGREL [Suspect]
     Indication: DRUG USE FOR UNKNOWN INDICATION

REACTIONS (1)
  - COMPLETED SUICIDE [None]
